FAERS Safety Report 4656501-4 (Version None)
Quarter: 2005Q2

REPORT INFORMATION
  Report Type: 
  Country: None (occurrence: None)
  Receive Date: 20050504
  Receipt Date: 20050426
  Transmission Date: 20051028
  Serious: Yes (Hospitalization)
  Sender: FDA-Public Use
  Company Number: CHPA2005US00852

PATIENT
  Age: 28 Year
  Sex: Female
  Weight: 65.8 kg

DRUGS (4)
  1. TRANSDERM SCOP [Suspect]
     Indication: MOTION SICKNESS
     Dosage: 1.5 MG, Q72H, TRANSDERMAL
     Route: 062
     Dates: start: 20050212, end: 20050219
  2. LEVAQUIN [Suspect]
     Indication: PHARYNGITIS STREPTOCOCCAL
     Dosage: 500 MG, QD, ORAL
     Route: 048
     Dates: start: 20050226
  3. ZOLOFT [Suspect]
     Indication: DEPRESSION
     Dosage: SEE IMAGE
  4. ADVIL COLD AND SINUS [Suspect]
     Dates: start: 20050201

REACTIONS (18)
  - ABNORMAL BEHAVIOUR [None]
  - ACTIVITIES OF DAILY LIVING IMPAIRED [None]
  - ANXIETY [None]
  - APHAGIA [None]
  - APHASIA [None]
  - CRYING [None]
  - DEHYDRATION [None]
  - DEPRESSED LEVEL OF CONSCIOUSNESS [None]
  - DISORIENTATION [None]
  - DRUG INTERACTION [None]
  - FLUID INTAKE REDUCED [None]
  - INCORRECT DRUG ADMINISTRATION DURATION [None]
  - INSOMNIA [None]
  - IRRITABILITY [None]
  - MENTAL DISORDER [None]
  - PHARYNGITIS STREPTOCOCCAL [None]
  - THERAPY NON-RESPONDER [None]
  - URINARY TRACT INFECTION [None]
